FAERS Safety Report 20061264 (Version 29)
Quarter: 2025Q1

REPORT INFORMATION
  Report Type: Spontaneous
  Country: US (occurrence: US)
  Receive Date: 20211112
  Receipt Date: 20250218
  Transmission Date: 20250408
  Serious: Yes (Life-Threatening, Hospitalization, Other)
  Sender: RANBAXY
  Company Number: US-SUN PHARMACEUTICAL INDUSTRIES LTD-2021R1-310181

PATIENT
  Age: 66 Year
  Sex: Female
  Weight: 48.526 kg

DRUGS (15)
  1. EPOPROSTENOL [Suspect]
     Active Substance: EPOPROSTENOL
     Indication: Pulmonary arterial hypertension
     Route: 042
     Dates: start: 20210430
  2. EPOPROSTENOL [Suspect]
     Active Substance: EPOPROSTENOL
     Route: 042
     Dates: start: 20210430
  3. EPOPROSTENOL [Suspect]
     Active Substance: EPOPROSTENOL
     Route: 042
     Dates: start: 20210430
  4. EPOPROSTENOL [Suspect]
     Active Substance: EPOPROSTENOL
     Route: 042
     Dates: start: 20210430
  5. EPOPROSTENOL [Suspect]
     Active Substance: EPOPROSTENOL
     Indication: Pulmonary arterial hypertension
     Route: 042
     Dates: start: 20210430
  6. EPOPROSTENOL [Suspect]
     Active Substance: EPOPROSTENOL
     Indication: Pulmonary arterial hypertension
     Route: 042
     Dates: start: 20210430
  7. EPOPROSTENOL [Suspect]
     Active Substance: EPOPROSTENOL
     Route: 042
     Dates: start: 20210430
  8. EPOPROSTENOL [Suspect]
     Active Substance: EPOPROSTENOL
     Route: 042
     Dates: start: 20210430
  9. EPOPROSTENOL [Suspect]
     Active Substance: EPOPROSTENOL
     Route: 042
     Dates: start: 20210430
  10. EPOPROSTENOL [Suspect]
     Active Substance: EPOPROSTENOL
     Route: 042
     Dates: start: 20210430
  11. EPOPROSTENOL [Suspect]
     Active Substance: EPOPROSTENOL
     Route: 042
     Dates: start: 20210430
  12. STERILE WATER [Suspect]
     Active Substance: WATER
     Indication: Product used for unknown indication
     Route: 065
  13. OPSUMIT [Concomitant]
     Active Substance: MACITENTAN
     Indication: Product used for unknown indication
     Route: 065
  14. TADALAFIL [Concomitant]
     Active Substance: TADALAFIL
     Indication: Product used for unknown indication
     Route: 065
  15. ELIQUIS [Concomitant]
     Active Substance: APIXABAN
     Indication: Product used for unknown indication
     Route: 065

REACTIONS (27)
  - Gastrointestinal haemorrhage [Unknown]
  - Dizziness [Unknown]
  - Drug ineffective [Unknown]
  - Loss of consciousness [Unknown]
  - Asthenia [Unknown]
  - Haemorrhage [Unknown]
  - Cardiac failure [Unknown]
  - Pneumonia [Unknown]
  - Central venous catheterisation [Unknown]
  - Complication associated with device [Unknown]
  - Lymphadenopathy [Unknown]
  - Arthritis [Unknown]
  - Expired product administered [Unknown]
  - Nasopharyngitis [Recovering/Resolving]
  - Nervousness [Unknown]
  - Pain in jaw [Not Recovered/Not Resolved]
  - Tremor [Unknown]
  - Weight decreased [Unknown]
  - COVID-19 [Unknown]
  - Therapy cessation [Unknown]
  - Influenza [Unknown]
  - Diarrhoea [Unknown]
  - Vomiting [Unknown]
  - Rhinorrhoea [Unknown]
  - Cough [Unknown]
  - Malaise [Unknown]
  - Viral infection [Unknown]

NARRATIVE: CASE EVENT DATE: 20230119
